FAERS Safety Report 5247437-9 (Version None)
Quarter: 2007Q1

REPORT INFORMATION
  Report Type: 
  Country: None (occurrence: None)
  Receive Date: 20070220
  Receipt Date: 20070130
  Transmission Date: 20070707
  Serious: Yes (Other)
  Sender: FDA-Public Use
  Company Number: US019314

PATIENT
  Age: 23 Year
  Sex: Female
  Weight: 102.1 kg

DRUGS (4)
  1. GABITRIL [Suspect]
     Indication: SOCIAL PHOBIA
     Dosage: 2 MG BID ORAL
     Route: 048
     Dates: start: 20030101, end: 20061201
  2. GABITRIL [Suspect]
     Indication: SOCIAL PHOBIA
     Dosage: 4 MG BID ORAL
     Route: 048
     Dates: start: 20060101
  3. XANAX [Concomitant]
  4. ZOLOFT [Concomitant]

REACTIONS (5)
  - CONVULSION [None]
  - HYPOAESTHESIA [None]
  - PARAESTHESIA [None]
  - TENSION [None]
  - TREMOR [None]
